FAERS Safety Report 4312837-8 (Version None)
Quarter: 2004Q1

REPORT INFORMATION
  Report Type: 
  Country: None (occurrence: None)
  Receive Date: 20040304
  Receipt Date: 20040227
  Transmission Date: 20041129
  Serious: Yes (Hospitalization)
  Sender: FDA-Public Use
  Company Number: 2003185215SE

PATIENT
  Age: 11 Year
  Sex: Female

DRUGS (4)
  1. DALACIN (CLINDAMYCIN) CAPSULE [Suspect]
     Dosage: 300-600 MG/DAY, ORAL
     Route: 048
     Dates: start: 20030825, end: 20030827
  2. ACETAMINOPHEN [Suspect]
     Dosage: 500 MG, QD, ORAL
     Route: 048
     Dates: start: 20030825, end: 20030825
  3. ALVEDON (PARACETAMOL) [Suspect]
     Dosage: 500 MG, PRN
     Dates: start: 20030826, end: 20030830
  4. DICLOFENAC SODIUM [Suspect]
     Dates: start: 20030825, end: 20030825

REACTIONS (8)
  - ABDOMINAL PAIN [None]
  - ALBUMIN URINE [None]
  - BACK PAIN [None]
  - BLOOD CREATININE INCREASED [None]
  - FEELING ABNORMAL [None]
  - RED BLOOD CELLS URINE [None]
  - VOMITING [None]
  - WHITE BLOOD CELLS URINE [None]
